FAERS Safety Report 22275190 (Version 2)
Quarter: 2023Q2

REPORT INFORMATION
  Report Type: Spontaneous
  Country: FR (occurrence: FR)
  Receive Date: 20230502
  Receipt Date: 20230504
  Transmission Date: 20230722
  Serious: Yes (Other)
  Sender: FDA-Public Use
  Company Number: FR-ANIPHARMA-2023-FR-000085

PATIENT
  Age: 67 Year
  Sex: Female

DRUGS (3)
  1. ANASTROZOLE [Suspect]
     Active Substance: ANASTROZOLE
     Indication: Breast cancer
     Dosage: 1MG DAILY
     Route: 065
     Dates: start: 2013
  2. OMEPRAZOLE [Suspect]
     Active Substance: OMEPRAZOLE
     Dosage: 20 MG DAILY
     Route: 065
     Dates: start: 2021
  3. HERCEPTIN [Suspect]
     Active Substance: TRASTUZUMAB
     Dosage: 600 MG Q CYCLE
     Route: 065
     Dates: start: 201411, end: 20230316

REACTIONS (2)
  - Pulmonary hypertension [Not Recovered/Not Resolved]
  - Mitral valve incompetence [Unknown]

NARRATIVE: CASE EVENT DATE: 20230404
